FAERS Safety Report 18270870 (Version 4)
Quarter: 2022Q1

REPORT INFORMATION
  Report Type: Spontaneous
  Country: CA (occurrence: None)
  Receive Date: 20200915
  Receipt Date: 20220112
  Transmission Date: 20220424
  Serious: Yes (Life-Threatening, Hospitalization, Other)
  Sender: FDA-Public Use
  Company Number: 2020SF16367

PATIENT
  Age: 56 Year
  Sex: Female
  Weight: 69 kg

DRUGS (21)
  1. ESOMEPRAZOLE MAGNESIUM [Suspect]
     Active Substance: ESOMEPRAZOLE MAGNESIUM
     Indication: Product used for unknown indication
     Route: 048
  2. ASPIRIN [Suspect]
     Active Substance: ASPIRIN
     Indication: Product used for unknown indication
     Route: 048
  3. AMLODIPINE [Suspect]
     Active Substance: AMLODIPINE BESYLATE
     Indication: Product used for unknown indication
     Route: 048
  4. AMLODIPINE [Suspect]
     Active Substance: AMLODIPINE BESYLATE
     Indication: Product used for unknown indication
     Dosage: 50 MG, QD
     Route: 048
  5. AMLODIPINE [Suspect]
     Active Substance: AMLODIPINE BESYLATE
     Indication: Product used for unknown indication
     Dosage: 50 MG, QD
     Route: 048
  6. IRBESARTAN [Suspect]
     Active Substance: IRBESARTAN
     Indication: Hypertension
     Route: 065
  7. IRBESARTAN [Suspect]
     Active Substance: IRBESARTAN
     Indication: Hypertension
     Route: 048
  8. JANUVIA [Suspect]
     Active Substance: SITAGLIPTIN PHOSPHATE
     Indication: Product used for unknown indication
     Dosage: 100 MG,QD
     Route: 048
  9. LIPITOR [Suspect]
     Active Substance: ATORVASTATIN CALCIUM
     Indication: Product used for unknown indication
     Dosage: 20 MG, QD
     Route: 048
  10. IRBESARTAN [Suspect]
     Active Substance: IRBESARTAN
     Indication: Hypertension
     Route: 048
  11. RASILEZ [Suspect]
     Active Substance: ALISKIREN
     Indication: Off label use
     Route: 065
  12. RASILEZ [Suspect]
     Active Substance: ALISKIREN
     Indication: Hypertension
     Route: 065
  13. RASILEZ [Suspect]
     Active Substance: ALISKIREN
     Indication: Microalbuminuria
     Route: 065
  14. ALISKIREN [Suspect]
     Active Substance: ALISKIREN
     Indication: Hypertension
     Dosage: 150 MG, QD
     Route: 048
  15. METFORMIN HYDROCHLORIDE [Suspect]
     Active Substance: METFORMIN HYDROCHLORIDE
     Indication: Hypertension
     Dosage: 150 MG, QD
     Route: 048
  16. METFORMIN HYDROCHLORIDE [Suspect]
     Active Substance: METFORMIN HYDROCHLORIDE
     Indication: Product used for unknown indication
     Dosage: 150 MG, QD
     Route: 048
  17. ESOMEPRAZOLE [Concomitant]
     Active Substance: ESOMEPRAZOLE
  18. VITAMIN B12 [Concomitant]
     Active Substance: CYANOCOBALAMIN
     Indication: Hypertension
  19. ASPIRIN [Concomitant]
     Active Substance: ASPIRIN
  20. AVAPRO [Concomitant]
     Active Substance: IRBESARTAN
     Route: 065
  21. GLUCOPHAGE [Concomitant]
     Active Substance: METFORMIN HYDROCHLORIDE
     Route: 065

REACTIONS (23)
  - Adjustment disorder [Recovered/Resolved with Sequelae]
  - Affect lability [Recovered/Resolved with Sequelae]
  - Anxiety [Recovered/Resolved with Sequelae]
  - Aphasia [Recovered/Resolved with Sequelae]
  - Asthenia [Recovered/Resolved with Sequelae]
  - Carotid artery thrombosis [Recovered/Resolved with Sequelae]
  - Cerebrovascular accident [Recovered/Resolved with Sequelae]
  - Confusional state [Recovered/Resolved with Sequelae]
  - Coordination abnormal [Recovered/Resolved with Sequelae]
  - Dysarthria [Recovered/Resolved with Sequelae]
  - Dysphagia [Recovered/Resolved with Sequelae]
  - Eating disorder [Recovered/Resolved with Sequelae]
  - Fall [Recovered/Resolved with Sequelae]
  - Hemiparesis [Recovered/Resolved with Sequelae]
  - Hemiplegia [Recovered/Resolved with Sequelae]
  - Impaired work ability [Recovered/Resolved with Sequelae]
  - Motor dysfunction [Recovered/Resolved with Sequelae]
  - Muscle spasticity [Recovered/Resolved with Sequelae]
  - Muscular weakness [Recovered/Resolved with Sequelae]
  - Nausea [Recovered/Resolved with Sequelae]
  - Neurologic neglect syndrome [Recovered/Resolved with Sequelae]
  - Personality disorder [Recovered/Resolved with Sequelae]
  - Sensory loss [Recovered/Resolved with Sequelae]
